FAERS Safety Report 8836308 (Version 3)
Quarter: 2013Q1

REPORT INFORMATION
  Report Type: Report from Study
  Country: BE (occurrence: BE)
  Receive Date: 20121011
  Receipt Date: 20130110
  Transmission Date: 20140127
  Serious: Yes (Hospitalization)
  Sender: FDA-Public Use
  Company Number: BE-ABBOTT-12P-013-0991561-00

PATIENT
  Age: 52 Year
  Sex: Female
  Weight: 69 kg

DRUGS (9)
  1. HUMIRA [Suspect]
     Indication: ANKYLOSING SPONDYLITIS
     Dates: start: 20120111
  2. SYNTHROID (ELTHYRONE) [Suspect]
  3. D-VITAL 1000/880 [Concomitant]
     Indication: PRODUCT USED FOR UNKNOWN INDICATION
  4. SIPRALEXA [Concomitant]
     Indication: PRODUCT USED FOR UNKNOWN INDICATION
  5. REDOMEX [Concomitant]
     Indication: PRODUCT USED FOR UNKNOWN INDICATION
  6. XANAX [Concomitant]
     Indication: PRODUCT USED FOR UNKNOWN INDICATION
  7. ZYPREXA [Concomitant]
     Indication: PRODUCT USED FOR UNKNOWN INDICATION
  8. VITAMIN B12 SUPPLEMENTS [Concomitant]
     Indication: PRODUCT USED FOR UNKNOWN INDICATION
  9. CELEBREX [Concomitant]
     Indication: ARTHRITIS

REACTIONS (4)
  - Rotator cuff syndrome [Recovered/Resolved]
  - Musculoskeletal pain [Unknown]
  - Tendon pain [Unknown]
  - Rotator cuff syndrome [Recovered/Resolved]
